FAERS Safety Report 4651221-4 (Version None)
Quarter: 2005Q2

REPORT INFORMATION
  Report Type: 
  Country: None (occurrence: None)
  Receive Date: 20050503
  Receipt Date: 20050426
  Transmission Date: 20051028
  Serious: Yes (Other)
  Sender: FDA-Public Use
  Company Number: PHBS2005IT06148

PATIENT
  Age: 67 Year
  Sex: Female

DRUGS (2)
  1. THALIDOMIDE [Concomitant]
     Indication: MULTIPLE MYELOMA
     Dosage: 100 MG/DAY
     Route: 048
     Dates: start: 20040702, end: 20050422
  2. ZOMETA [Suspect]
     Indication: MULTIPLE MYELOMA
     Dosage: MONTHLY
     Route: 065
     Dates: start: 20040402, end: 20050410

REACTIONS (2)
  - FISTULA [None]
  - SWELLING FACE [None]
